FAERS Safety Report 25648864 (Version 1)
Quarter: 2025Q3

REPORT INFORMATION
  Report Type: Report from Study
  Country: BR (occurrence: BR)
  Receive Date: 20250806
  Receipt Date: 20250806
  Transmission Date: 20251021
  Serious: Yes (Hospitalization, Other)
  Sender: AMGEN
  Company Number: BR-AMGEN-BRASL2025012207

PATIENT
  Age: 56 Year
  Sex: Male

DRUGS (7)
  1. VECTIBIX [Suspect]
     Active Substance: PANITUMUMAB
     Indication: Colorectal cancer metastatic
     Route: 065
     Dates: start: 20241206
  2. LEVODOPA [Concomitant]
     Active Substance: LEVODOPA
  3. Pronazol [Concomitant]
  4. OLMESARTAN [Concomitant]
     Active Substance: OLMESARTAN
  5. PAROXETINE [Concomitant]
     Active Substance: PAROXETINE
  6. PAROXETINE HYDROCHLORIDE [Concomitant]
     Active Substance: PAROXETINE HYDROCHLORIDE
  7. Lesdot [Concomitant]

REACTIONS (6)
  - Colorectal cancer metastatic [Not Recovered/Not Resolved]
  - Medical device site infection [Recovering/Resolving]
  - Urinary tract infection [Not Recovered/Not Resolved]
  - Malaise [Recovering/Resolving]
  - Pyrexia [Not Recovered/Not Resolved]
  - Skin wound [Not Recovered/Not Resolved]

NARRATIVE: CASE EVENT DATE: 20250101
